FAERS Safety Report 7763508-7 (Version None)
Quarter: 2011Q3

REPORT INFORMATION
  Report Type: 
  Country: None (occurrence: None)
  Receive Date: 20110920
  Receipt Date: 20110913
  Transmission Date: 20111222
  Serious: Yes (Hospitalization, Other)
  Sender: FDA-Public Use
  Company Number: PHEH2009US16456

PATIENT
  Sex: Male

DRUGS (3)
  1. EXJADE [Suspect]
     Dosage: 500 MG, BID (2 TABLETS DAILY)
     Route: 048
     Dates: start: 20091102
  2. EXJADE [Suspect]
     Indication: ANAEMIA
     Dosage: 1 DF, QD
     Route: 048
     Dates: start: 20091022
  3. EXJADE [Suspect]
     Dosage: 500 MG, QOD
     Route: 048

REACTIONS (10)
  - FATIGUE [None]
  - DIARRHOEA [None]
  - WEIGHT DECREASED [None]
  - ASTHENIA [None]
  - ABDOMINAL PAIN UPPER [None]
  - CLOSTRIDIUM DIFFICILE COLITIS [None]
  - CHILLS [None]
  - RASH [None]
  - BLOOD URINE PRESENT [None]
  - PRURITUS [None]
